FAERS Safety Report 4545588-5 (Version None)
Quarter: 2005Q1

REPORT INFORMATION
  Report Type: 
  Country: None (occurrence: None)
  Receive Date: 20050103
  Receipt Date: 20041213
  Transmission Date: 20050727
  Serious: Yes (Hospitalization, Other)
  Sender: FDA-Public Use
  Company Number: USA041183216

PATIENT
  Age: 81 Year
  Sex: Female
  Weight: 57 kg

DRUGS (5)
  1. FORTEO [Suspect]
     Indication: OSTEOPOROSIS
     Dosage: 20 UG/1 DAY
     Dates: start: 20031001
  2. BEXTRA [Concomitant]
  3. ALLEGRA [Suspect]
  4. EFFEXOR [Concomitant]
  5. BUMADIZONE CALCIUM [Concomitant]

REACTIONS (8)
  - ANKLE FRACTURE [None]
  - ARTHRALGIA [None]
  - BRONCHITIS CHRONIC [None]
  - CONDITION AGGRAVATED [None]
  - FIBULA FRACTURE [None]
  - INJECTION SITE PAIN [None]
  - LUNG INFECTION [None]
  - PHARMACEUTICAL PRODUCT COMPLAINT [None]
